FAERS Safety Report 7353349-7 (Version None)
Quarter: 2011Q1

REPORT INFORMATION
  Report Type: 
  Country: None (occurrence: None)
  Receive Date: 20110315
  Receipt Date: 20110304
  Transmission Date: 20110831
  Serious: Yes (Hospitalization)
  Sender: FDA-Public Use
  Company Number: US-BRISTOL-MYERS SQUIBB COMPANY-15591423

PATIENT

DRUGS (1)
  1. WARFARIN SODIUM [Suspect]

REACTIONS (1)
  - SWOLLEN TONGUE [None]
